FAERS Safety Report 12586870 (Version 3)
Quarter: 2016Q3

REPORT INFORMATION
  Report Type: Report from Study
  Country: US (occurrence: US)
  Receive Date: 20160725
  Receipt Date: 20160907
  Transmission Date: 20161109
  Serious: Yes (Death, Hospitalization, Other)
  Sender: FDA-Public Use
  Company Number: US-JNJFOC-20160715758

PATIENT
  Age: 55 Year
  Sex: Male

DRUGS (14)
  1. ASPIRIN. [Concomitant]
     Active Substance: ASPIRIN
  2. XYLOMETAZOLINE HYDROCHLORIDE [Concomitant]
     Active Substance: XYLOMETAZOLINE HYDROCHLORIDE
  3. LISINOPRIL. [Concomitant]
     Active Substance: LISINOPRIL
  4. METOPROLOL. [Concomitant]
     Active Substance: METOPROLOL
  5. PEPCID [Concomitant]
     Active Substance: FAMOTIDINE
  6. INSULIN HUMAN INJECTION, ISOPHANE [Concomitant]
     Active Substance: INSULIN HUMAN
  7. KEPPRA [Concomitant]
     Active Substance: LEVETIRACETAM
  8. OXYCODONE [Concomitant]
     Active Substance: OXYCODONE
  9. IMBRUVICA [Suspect]
     Active Substance: IBRUTINIB
     Indication: MANTLE CELL LYMPHOMA
     Route: 048
     Dates: start: 20150826
  10. XARELTO [Concomitant]
     Active Substance: RIVAROXABAN
  11. GLUCOSAMINE [Concomitant]
     Active Substance: GLUCOSAMINE
  12. ATORVASTATIN [Concomitant]
     Active Substance: ATORVASTATIN
  13. MAGNESIUM [Concomitant]
     Active Substance: MAGNESIUM
  14. HYDROCODONE [Concomitant]
     Active Substance: HYDROCODONE

REACTIONS (4)
  - Death [Fatal]
  - Thrombosis [Unknown]
  - Dyspnoea [Not Recovered/Not Resolved]
  - Splenomegaly [Unknown]

NARRATIVE: CASE EVENT DATE: 20160714
